FAERS Safety Report 19244823 (Version 1)
Quarter: 2021Q2

REPORT INFORMATION
  Report Type: Other
  Country: US (occurrence: US)
  Receive Date: 20210512
  Receipt Date: 20210512
  Transmission Date: 20210717
  Serious: Yes (Other)
  Sender: FDA-Public Use
  Company Number: US-ROCHE-2823328

PATIENT
  Sex: Female

DRUGS (2)
  1. ACTEMRA [Suspect]
     Active Substance: TOCILIZUMAB
     Indication: GIANT CELL ARTERITIS
     Route: 058
  2. ACTEMRA [Suspect]
     Active Substance: TOCILIZUMAB

REACTIONS (8)
  - Nausea [Recovered/Resolved]
  - Headache [Unknown]
  - Adverse reaction [Unknown]
  - Eye pain [Unknown]
  - Memory impairment [Unknown]
  - Blindness [Unknown]
  - Ill-defined disorder [Unknown]
  - Retching [Unknown]
